FAERS Safety Report 10124832 (Version 1)
Quarter: 2014Q2

REPORT INFORMATION
  Report Type: Other
  Country: None (occurrence: US)
  Receive Date: 20140427
  Receipt Date: 20140427
  Transmission Date: 20141212
  Serious: Yes (Other)
  Sender: FDA-Public Use
  Company Number: US-GSKPPD-2014GSK022053

PATIENT
  Sex: 0

DRUGS (1)
  1. AVANDIA [Suspect]
     Indication: DIABETES MELLITUS
     Route: 048

REACTIONS (5)
  - Cardiac failure congestive [None]
  - Coronary arterial stent insertion [None]
  - Angiogram [None]
  - Angina pectoris [None]
  - Myocardial infarction [None]
